FAERS Safety Report 8277603-X (Version None)
Quarter: 2012Q2

REPORT INFORMATION
  Report Type: 
  Country: None (occurrence: None)
  Receive Date: 20120412
  Receipt Date: 20120405
  Transmission Date: 20120825
  Serious: Yes (Other)
  Sender: FDA-Public Use
  Company Number: CA-PFIZER INC-2012018244

PATIENT
  Age: 90 Year
  Sex: Female

DRUGS (5)
  1. LYRICA [Suspect]
     Indication: NEUROPATHY PERIPHERAL
     Dosage: 25 MG, 3X/DAY
     Route: 048
     Dates: start: 20091201
  2. LYRICA [Suspect]
     Indication: PAIN
     Dosage: 25 MG, 2X/DAY
     Route: 048
     Dates: end: 20120125
  3. PRAVASTATIN [Suspect]
     Indication: LIPIDS INCREASED
  4. DETROL [Concomitant]
     Indication: BLADDER DISORDER
     Dosage: UNK
  5. PRAVASTATIN [Suspect]
     Indication: BLOOD CHOLESTEROL INCREASED
     Dosage: 40 MG, ALTERNATE DAY
     Route: 048

REACTIONS (13)
  - GAIT DISTURBANCE [None]
  - BLOOD THYROID STIMULATING HORMONE INCREASED [None]
  - RHEUMATOID FACTOR INCREASED [None]
  - DIPLOPIA [None]
  - VISION BLURRED [None]
  - NAIL DISORDER [None]
  - DRY SKIN [None]
  - BLOOD POTASSIUM INCREASED [None]
  - DIZZINESS [None]
  - INCONTINENCE [None]
  - RASH [None]
  - SKIN LESION [None]
  - C-REACTIVE PROTEIN INCREASED [None]
